FAERS Safety Report 22245068 (Version 1)
Quarter: 2023Q2

REPORT INFORMATION
  Report Type: Spontaneous
  Country: US (occurrence: None)
  Receive Date: 20230423
  Receipt Date: 20230423
  Transmission Date: 20230721
  Serious: Yes (Other)
  Sender: FDA-Public Use
  Company Number: None

PATIENT
  Age: 50 Year
  Sex: Female

DRUGS (1)
  1. AMLODIPINE [Suspect]
     Active Substance: AMLODIPINE BESYLATE
     Dosage: FREQUENCY : DAILY;?
     Route: 048
     Dates: start: 20230410, end: 20230423

REACTIONS (4)
  - Hypoaesthesia [None]
  - Skin tightness [None]
  - Headache [None]
  - Product odour abnormal [None]

NARRATIVE: CASE EVENT DATE: 20230423
